FAERS Safety Report 6695533-1 (Version None)
Quarter: 2010Q2

REPORT INFORMATION
  Report Type: 
  Country: None (occurrence: None)
  Receive Date: 20100426
  Receipt Date: 20100416
  Transmission Date: 20101027
  Serious: Yes (Other)
  Sender: FDA-Public Use
  Company Number: DE-BIOGENIDEC-2009BI025353

PATIENT
  Age: 44 Year
  Sex: Female
  Weight: 60 kg

DRUGS (6)
  1. TYSABRI [Suspect]
     Indication: RELAPSING-REMITTING MULTIPLE SCLEROSIS
     Route: 042
     Dates: start: 20071029, end: 20090803
  2. TYSABRI [Suspect]
     Route: 042
     Dates: start: 20090921
  3. FLUOXETINE HCL [Concomitant]
     Indication: DEPRESSION
     Dates: start: 20060606
  4. BACLOFEN [Concomitant]
     Indication: MUSCLE SPASTICITY
     Dates: start: 20060404
  5. CARBAMAZEPINE [Concomitant]
     Indication: PAIN
     Dates: start: 20090711
  6. ANTACID TAB [Concomitant]

REACTIONS (1)
  - HERPES ZOSTER [None]
